FAERS Safety Report 7237270-0 (Version None)
Quarter: 2011Q1

REPORT INFORMATION
  Report Type: 
  Country: None (occurrence: None)
  Receive Date: 20110121
  Receipt Date: 20110115
  Transmission Date: 20110831
  Serious: Yes (Hospitalization)
  Sender: FDA-Public Use
  Company Number: US-AMGEN-USASP2011002906

PATIENT

DRUGS (1)
  1. ENBREL [Suspect]
     Indication: RHEUMATOID ARTHRITIS
     Dosage: 25 MG, 2 TIMES/WK

REACTIONS (6)
  - INCORRECT DOSE ADMINISTERED [None]
  - PNEUMONIA [None]
  - ATRIAL FIBRILLATION [None]
  - ACCIDENTAL OVERDOSE [None]
  - CEREBROVASCULAR ACCIDENT [None]
  - RASH [None]
